FAERS Safety Report 10146394 (Version 1)
Quarter: 2014Q2

REPORT INFORMATION
  Report Type: Spontaneous
  Country: US (occurrence: US)
  Receive Date: 20140501
  Receipt Date: 20140501
  Transmission Date: 20141212
  Serious: Yes (Hospitalization, Other)
  Sender: FDA-Public Use
  Company Number: US-009507513-1404USA014150

PATIENT
  Sex: Male

DRUGS (1)
  1. TICE BCG LIVE [Suspect]
     Indication: BLADDER CANCER
     Dosage: UNK
     Route: 043
     Dates: start: 201003

REACTIONS (22)
  - Bladder cancer [Unknown]
  - Urinary cystectomy [Unknown]
  - Prostatectomy [Unknown]
  - Malaise [Recovered/Resolved]
  - Burning sensation [Recovered/Resolved]
  - Micturition urgency [Recovered/Resolved]
  - Pollakiuria [Recovered/Resolved]
  - Dysuria [Recovered/Resolved]
  - Haemorrhage [Recovered/Resolved]
  - Haematocrit decreased [Recovered/Resolved]
  - Heart rate increased [Recovered/Resolved]
  - Pleural effusion [Recovered/Resolved]
  - Staphylococcal infection [Recovered/Resolved]
  - Gallbladder disorder [Unknown]
  - Cholecystectomy [Unknown]
  - Atrial fibrillation [Recovered/Resolved]
  - Weight decreased [Unknown]
  - Renal haematoma [Unknown]
  - Haematoma evacuation [Unknown]
  - Loss of libido [Unknown]
  - Biopsy bladder [Unknown]
  - Urostomy [Unknown]
